FAERS Safety Report 7967526-5 (Version None)
Quarter: 2011Q4

REPORT INFORMATION
  Report Type: 
  Country: None (occurrence: None)
  Receive Date: 20111207
  Receipt Date: 20061009
  Transmission Date: 20120403
  Serious: Yes (Hospitalization)
  Sender: FDA-Public Use
  Company Number: PRED20110165(0)

PATIENT
  Age: 42 Year
  Sex: Male

DRUGS (4)
  1. PREDNISONE TAB [Suspect]
     Indication: RHEUMATOID ARTHRITIS
     Dosage: 60 MG/DAY, ORAL
     Route: 048
  2. LEFLUNOMIDE [Suspect]
     Indication: RHEUMATOID ARTHRITIS
     Dosage: 20 MG/DAY, ORAL
     Route: 048
  3. PREDNISONE TAB [Suspect]
     Indication: RHEUMATOID ARTHRITIS
     Dosage: 20 MG/DAY, ORAL
     Route: 048
  4. PREDNISONE TAB [Suspect]
     Indication: RHEUMATOID ARTHRITIS
     Dosage: 10 MG/DAY, ORAL
     Route: 048

REACTIONS (4)
  - PNEUMONIA [None]
  - INTERSTITIAL LUNG DISEASE [None]
  - ALVEOLAR PROTEINOSIS [None]
  - RESPIRATORY FAILURE [None]
